FAERS Safety Report 17424420 (Version 2)
Quarter: 2020Q4

REPORT INFORMATION
  Report Type: Spontaneous
  Country: JP (occurrence: JP)
  Receive Date: 20200217
  Receipt Date: 20201104
  Transmission Date: 20210113
  Serious: Yes (Hospitalization, Other)
  Sender: FDA-Public Use
  Company Number: NVSJ2020JP001856

PATIENT
  Age: 70 Year
  Sex: Male

DRUGS (2)
  1. DISTIGMINE BROMIDE [Concomitant]
     Active Substance: DISTIGMINE BROMIDE
     Indication: URINARY RETENTION
     Dosage: 5 MG
     Route: 048
  2. RIVASTIGMINE. [Suspect]
     Active Substance: RIVASTIGMINE
     Indication: DEMENTIA ALZHEIMER^S TYPE
     Dosage: UNK
     Route: 065

REACTIONS (13)
  - Pyrexia [Unknown]
  - Bradycardia [Recovering/Resolving]
  - Miosis [Unknown]
  - Altered state of consciousness [Unknown]
  - Hyperhidrosis [Unknown]
  - Urinary retention [Unknown]
  - Dehydration [Unknown]
  - Cardiac arrest [Recovering/Resolving]
  - Drug level increased [Unknown]
  - Cholinergic syndrome [Unknown]
  - Salivary hypersecretion [Unknown]
  - Pneumonia [Unknown]
  - General physical health deterioration [Unknown]
